FAERS Safety Report 11050740 (Version 1)
Quarter: 2015Q2

REPORT INFORMATION
  Report Type: Spontaneous
  Country: US (occurrence: None)
  Receive Date: 20150420
  Receipt Date: 20150420
  Transmission Date: 20150821
  Serious: No
  Sender: FDA-Public Use
  Company Number: None

PATIENT
  Sex: Female

DRUGS (1)
  1. CHLOROQUINE HCL [Suspect]
     Active Substance: CHLOROQUINE HYDROCHLORIDE

REACTIONS (3)
  - Drug prescribing error [None]
  - Intercepted drug administration error [None]
  - Drug dispensing error [None]

NARRATIVE: CASE EVENT DATE: 2015
